FAERS Safety Report 11532605 (Version 2)
Quarter: 2015Q4

REPORT INFORMATION
  Report Type: Report from Study
  Country: BR (occurrence: BR)
  Receive Date: 20150921
  Receipt Date: 20151021
  Transmission Date: 20160304
  Serious: Yes (Life-Threatening, Disabling, Other)
  Sender: FDA-Public Use
  Company Number: PHHY2015BR113423

PATIENT
  Sex: Female
  Weight: 96 kg

DRUGS (9)
  1. CARVEDILOL. [Concomitant]
     Active Substance: CARVEDILOL
     Indication: ARRHYTHMIA
     Dosage: 2 DF, QD (5 YEARS AGO)
     Route: 048
  2. DIPYRONE [Concomitant]
     Active Substance: DIPYRONE
     Indication: PAIN
     Dosage: 1 TABLET, QD (15 YEARS AGO)
     Route: 048
  3. TEGRETOL CR [Suspect]
     Active Substance: CARBAMAZEPINE
     Indication: CEREBROVASCULAR ACCIDENT
     Dosage: 2 DF (200 MG), BID, 1 IN THE MORNING AND 1 AT NIGHT
     Route: 065
  4. TEGRETOL CR [Suspect]
     Active Substance: CARBAMAZEPINE
     Indication: CEREBRAL ISCHAEMIA
  5. ASA [Concomitant]
     Active Substance: ASPIRIN
     Indication: THROMBOSIS
     Dosage: 1 TABLET, QD (10 YEARS AGO)
     Route: 048
  6. ASA [Concomitant]
     Active Substance: ASPIRIN
     Indication: PROPHYLAXIS
  7. OMEPRAZOLE. [Concomitant]
     Active Substance: OMEPRAZOLE
     Indication: PROPHYLAXIS
     Dosage: 1 TABLET, QD (10 YEARS AGO)
     Route: 048
  8. METFORMIN [Concomitant]
     Active Substance: METFORMIN HYDROCHLORIDE
     Indication: DIABETES PROPHYLAXIS
     Dosage: 1 TABLET, QD (8 YEARS AGO)
     Route: 048
  9. MONOCORDIL [Concomitant]
     Active Substance: ISOSORBIDE MONONITRATE
     Indication: CARDIAC DISORDER
     Dosage: 2 TABLET, QD (3 YEARS AGO)
     Route: 048

REACTIONS (10)
  - Hypertension [Recovering/Resolving]
  - Product use issue [Unknown]
  - Dizziness [Recovering/Resolving]
  - Cerebral ischaemia [Recovering/Resolving]
  - Anxiety [Recovering/Resolving]
  - Visual impairment [Not Recovered/Not Resolved]
  - Headache [Recovering/Resolving]
  - Enuresis [Not Recovered/Not Resolved]
  - Blood cholesterol increased [Recovering/Resolving]
  - Cerebrovascular accident [Recovering/Resolving]
